FAERS Safety Report 9832682 (Version 4)
Quarter: 2014Q2

REPORT INFORMATION
  Report Type: Spontaneous
  Country: US (occurrence: US)
  Receive Date: 20140121
  Receipt Date: 20140522
  Transmission Date: 20141212
  Serious: Yes (Hospitalization, Other)
  Sender: FDA-Public Use
  Company Number: US-PURDUE-USA-2013-0108413

PATIENT
  Age: 53 Year
  Sex: Female
  Weight: 56.69 kg

DRUGS (3)
  1. OXYCONTIN (NDA 22-272) [Suspect]
     Indication: INTERVERTEBRAL DISC DEGENERATION
     Dosage: 60 MG, Q8H
     Route: 048
     Dates: start: 2012
  2. OXYCONTIN (NDA 22-272) [Suspect]
     Indication: NERVE INJURY
     Dosage: 40 MG, BID
     Route: 048
     Dates: start: 201312
  3. OXYCONTIN (NDA 22-272) [Suspect]
     Indication: BONE PAIN

REACTIONS (7)
  - Cerebrovascular accident [Recovered/Resolved]
  - Atrial fibrillation [Unknown]
  - Speech disorder [Recovered/Resolved]
  - Dysphagia [Recovered/Resolved]
  - Bone pain [Unknown]
  - Anxiety [Unknown]
  - Sleep disorder [Unknown]
